FAERS Safety Report 11776783 (Version 1)
Quarter: 2015Q4

REPORT INFORMATION
  Report Type: Spontaneous
  Country: US (occurrence: US)
  Receive Date: 20151125
  Receipt Date: 20151125
  Transmission Date: 20160304
  Serious: No
  Sender: FDA-Public Use
  Company Number: US-TEVA-568065USA

PATIENT

DRUGS (1)
  1. BUDESONIDE. [Suspect]
     Active Substance: BUDESONIDE
     Indication: EOSINOPHILIA
     Dosage: VIAL  0.5 MG / 2 ML
     Route: 048
     Dates: start: 20150518

REACTIONS (2)
  - Drug ineffective for unapproved indication [Unknown]
  - Product use issue [Unknown]
